FAERS Safety Report 7490210-1 (Version None)
Quarter: 2011Q2

REPORT INFORMATION
  Report Type: 
  Country: None (occurrence: None)
  Receive Date: 20110519
  Receipt Date: 20110414
  Transmission Date: 20111010
  Serious: Yes (Other)
  Sender: FDA-Public Use
  Company Number: US-BAYER-201039081NA

PATIENT
  Age: 40 Year
  Sex: Female
  Weight: 72.562 kg

DRUGS (6)
  1. DROSPIRENONE AND ETHINYL ESTRADIOL [Suspect]
     Indication: ACNE
  2. YASMIN [Suspect]
     Indication: ACNE
  3. EXCEDRIN (MIGRAINE) [Concomitant]
     Indication: HEADACHE
  4. XANAX [Concomitant]
     Indication: ANXIETY
     Dosage: UNK UNK, PRN
     Route: 048
  5. YAZ [Suspect]
     Indication: ACNE
  6. ASACOL [Concomitant]
     Indication: COLITIS ULCERATIVE

REACTIONS (2)
  - INJURY [None]
  - PULMONARY EMBOLISM [None]
